FAERS Safety Report 6877892-X (Version None)
Quarter: 2010Q3

REPORT INFORMATION
  Report Type: 
  Country: None (occurrence: None)
  Receive Date: 20100727
  Receipt Date: 20100701
  Transmission Date: 20110219
  Serious: No
  Sender: FDA-Public Use
  Company Number: US-ABBOTT-10P-163-0655588-00

PATIENT
  Sex: Female

DRUGS (6)
  1. SYNTHROID [Suspect]
     Indication: HYPOTHYROIDISM
     Route: 048
     Dates: start: 20070301
  2. SYNTHROID [Suspect]
     Route: 048
  3. SYNTHROID [Suspect]
     Route: 048
  4. THYRONORM [Suspect]
     Indication: HYPOTHYROIDISM
     Dosage: MEDICATION FOUND IN INDIA
  5. BAGIFEM [Concomitant]
     Indication: OESTROGEN REPLACEMENT THERAPY
  6. GLUCOSAMINE [Concomitant]
     Indication: PRODUCT USED FOR UNKNOWN INDICATION

REACTIONS (3)
  - BLOOD THYROID STIMULATING HORMONE INCREASED [None]
  - DRUG ADMINISTRATION ERROR [None]
  - DRUG DISPENSING ERROR [None]
